FAERS Safety Report 10187994 (Version 1)
Quarter: 2014Q2

REPORT INFORMATION
  Report Type: Spontaneous
  Country: US (occurrence: US)
  Receive Date: 20140522
  Receipt Date: 20140522
  Transmission Date: 20141212
  Serious: No
  Sender: FDA-Public Use
  Company Number: US-SANOFI-AVENTIS-2013SA094360

PATIENT
  Age: 54 Year
  Sex: Female
  Weight: 141 kg

DRUGS (10)
  1. LANTUS SOLOSTAR [Suspect]
     Indication: TYPE 2 DIABETES MELLITUS
     Dosage: DOSE:50 UNIT(S)
     Route: 058
     Dates: start: 20120401, end: 201303
  2. SOLOSTAR [Concomitant]
     Dates: start: 2013
  3. HUMALOG [Concomitant]
     Dosage: DOSE:10 UNIT(S)
  4. PRAVASTATIN [Concomitant]
  5. OMEPRAZOLE [Concomitant]
  6. BUPROPION [Concomitant]
  7. LEVOTHYROXINE [Concomitant]
  8. GABAPENTIN [Concomitant]
  9. FENOFIBRATE [Concomitant]
  10. ASPIRIN [Concomitant]

REACTIONS (3)
  - Fibromyalgia [Not Recovered/Not Resolved]
  - Blood glucose increased [Not Recovered/Not Resolved]
  - Incorrect product storage [Unknown]
